FAERS Safety Report 5247608-1 (Version None)
Quarter: 2007Q1

REPORT INFORMATION
  Report Type: 
  Country: None (occurrence: None)
  Receive Date: 20070227
  Receipt Date: 20070215
  Transmission Date: 20070707
  Serious: Yes (Other)
  Sender: FDA-Public Use
  Company Number: ESWYE987821SEP06

PATIENT
  Age: 59 Year
  Sex: Male

DRUGS (10)
  1. ENBREL [Suspect]
     Indication: DRUG USE FOR UNKNOWN INDICATION
     Dosage: UNKNOWN
     Route: 058
     Dates: start: 20050701, end: 20060101
  2. NEURONTIN [Concomitant]
     Dosage: UNKNOWN
  3. TRYPTIZOL [Concomitant]
     Dosage: UNKNOWN
  4. PARACETAMOL/TRAMADOL HYDROCHLORIDE [Concomitant]
     Dosage: UNKNOWN
  5. OMEPRAZOLE [Concomitant]
     Dosage: UNKNOWN
  6. DIANBEN [Concomitant]
     Dosage: UNKNOWN
  7. ENALAPRIL MALEATE [Concomitant]
     Dosage: UNKNOWN
  8. CALCEOS [Concomitant]
     Dosage: UNKNOWN
  9. DACORTIN [Concomitant]
     Dosage: UNKNOWN
  10. ACFOL [Concomitant]
     Dosage: UNKNOWN

REACTIONS (1)
  - APLASIA [None]
